FAERS Safety Report 17398175 (Version 2)
Quarter: 2020Q1

REPORT INFORMATION
  Report Type: Report from Study
  Country: JP (occurrence: JP)
  Receive Date: 20200210
  Receipt Date: 20200329
  Transmission Date: 20200409
  Serious: Yes (Hospitalization)
  Sender: FDA-Public Use
  Company Number: JP-EISAI MEDICAL RESEARCH-EC-2020-069782

PATIENT
  Age: 71 Year
  Sex: Male
  Weight: 59 kg

DRUGS (3)
  1. LENVIMA [Suspect]
     Active Substance: LENVATINIB
     Route: 048
     Dates: start: 20190627, end: 20190701
  2. LENVIMA [Suspect]
     Active Substance: LENVATINIB
     Route: 048
     Dates: start: 20190404, end: 20190529
  3. LENVIMA [Suspect]
     Active Substance: LENVATINIB
     Indication: HEPATOCELLULAR CARCINOMA
     Route: 048
     Dates: start: 20181207, end: 20190107

REACTIONS (1)
  - Haematemesis [Recovered/Resolved]

NARRATIVE: CASE EVENT DATE: 20190912
